FAERS Safety Report 5750730-4 (Version None)
Quarter: 2008Q2

REPORT INFORMATION
  Report Type: 
  Country: None (occurrence: None)
  Receive Date: 20080523
  Receipt Date: 20080523
  Transmission Date: 20081010
  Serious: Yes (Death, Hospitalization)
  Sender: FDA-Public Use
  Company Number: None

PATIENT
  Age: 47 Year
  Sex: Male
  Weight: 95.2554 kg

DRUGS (2)
  1. DILANTIN [Suspect]
     Indication: CONVULSION
     Dosage: 300 MG 100 AM/ 200 PM PO
     Route: 048
     Dates: start: 19951025, end: 20060401
  2. PHENYTOIN SOD EXT 100 MG MYLAN [Suspect]
     Indication: CONVULSION
     Dosage: 600 MG 200/3 TIMES DAILY PO
     Route: 048
     Dates: start: 20060701, end: 20080522

REACTIONS (10)
  - CONVULSION [None]
  - FOREIGN BODY TRAUMA [None]
  - HIP FRACTURE [None]
  - INCORRECT DRUG DOSAGE FORM ADMINISTERED [None]
  - LACERATION [None]
  - LOWER LIMB FRACTURE [None]
  - PELVIC FRACTURE [None]
  - PHARMACEUTICAL PRODUCT COMPLAINT [None]
  - ROAD TRAFFIC ACCIDENT [None]
  - THERAPEUTIC RESPONSE UNEXPECTED WITH DRUG SUBSTITUTION [None]
